FAERS Safety Report 14186837 (Version 3)
Quarter: 2018Q1

REPORT INFORMATION
  Report Type: Spontaneous
  Country: TR (occurrence: TR)
  Receive Date: 20171114
  Receipt Date: 20180319
  Transmission Date: 20180508
  Serious: Yes (Death)
  Sender: FDA-Public Use
  Company Number: TR-ABBVIE-17P-161-2162918-00

PATIENT
  Age: 57 Year
  Sex: Male

DRUGS (1)
  1. TARKA FORTE [Suspect]
     Active Substance: TRANDOLAPRIL\VERAPAMIL HYDROCHLORIDE
     Indication: HYPERTENSION
     Dosage: TOOK A TABLET
     Route: 048
     Dates: start: 20170907, end: 20170907

REACTIONS (6)
  - Lip oedema [Fatal]
  - Tongue oedema [Fatal]
  - Dizziness [Fatal]
  - Contraindicated product administered [Fatal]
  - Dyspnoea [Fatal]
  - Hyperhidrosis [Fatal]

NARRATIVE: CASE EVENT DATE: 20170907
